FAERS Safety Report 24305119 (Version 4)
Quarter: 2025Q3

REPORT INFORMATION
  Report Type: Report from Study
  Country: US (occurrence: US)
  Receive Date: 20240911
  Receipt Date: 20250808
  Transmission Date: 20251020
  Serious: Yes (Hospitalization)
  Sender: ROCHE
  Company Number: US-ROCHE-10000071215

PATIENT
  Age: 70 Year
  Sex: Female

DRUGS (10)
  1. ACTEMRA [Suspect]
     Active Substance: TOCILIZUMAB
     Indication: Giant cell arteritis
     Dosage: STRENGTH: 162 MG/ 0.9 ML
     Route: 058
  2. ACTEMRA [Suspect]
     Active Substance: TOCILIZUMAB
     Indication: Giant cell arteritis
  3. Triamtve [Concomitant]
     Indication: Hypertension
     Dosage: TAKE 1 TABLET BY MOUTH EVERY DAY ORAL
  4. AMLODIPINE [Concomitant]
     Active Substance: AMLODIPINE BESYLATE
     Indication: Hypertension
     Dosage: 1 TABLET ORALLY ONCE A DAY
  5. POTASSIUM [Concomitant]
     Active Substance: POTASSIUM
     Indication: Blood potassium decreased
     Dosage: 3 TABLETS ORALLY ONCE A DAY
  6. OMEPRAZOLE [Concomitant]
     Active Substance: OMEPRAZOLE
     Dosage: TAKE 1 TABLET 30 MINUTES BEFORE MORNING MEAL EVERY DAY
  7. ASPIRIN [Concomitant]
     Active Substance: ASPIRIN
     Dosage: 1 TABLET ORALLY ONCE A DAY
  8. ESCITALOPRAM [Concomitant]
     Active Substance: ESCITALOPRAM OXALATE
     Dosage: 1 TABLET ORAL DAILY
  9. VITAMIN D [Concomitant]
     Active Substance: VITAMIN D NOS
     Dosage: 1 TABLET ORALLY ONCE A DAY
     Route: 048
  10. ACETAMINOPHEN [Concomitant]
     Active Substance: ACETAMINOPHEN
     Indication: Pain
     Dosage: ONLY TAKES ONE A DAY

REACTIONS (7)
  - Oropharyngeal pain [Recovered/Resolved]
  - Arthropathy [Recovered/Resolved]
  - Fall [Unknown]
  - Pain [Unknown]
  - Blood potassium decreased [Unknown]
  - Blood iron decreased [Unknown]
  - Dysphagia [Recovered/Resolved]

NARRATIVE: CASE EVENT DATE: 20240101
